FAERS Safety Report 8403309-X (Version None)
Quarter: 2012Q2

REPORT INFORMATION
  Report Type: 
  Country: None (occurrence: None)
  Receive Date: 20120601
  Receipt Date: 20120523
  Transmission Date: 20120825
  Serious: Yes (Hospitalization, Other)
  Sender: FDA-Public Use
  Company Number: IT-BRISTOL-MYERS SQUIBB COMPANY-16623563

PATIENT
  Age: 66 Year
  Sex: Male

DRUGS (3)
  1. SIMVASTATIN [Concomitant]
     Route: 048
     Dates: start: 20110101
  2. COUMADIN [Suspect]
     Indication: AORTIC VALVE REPLACEMENT
     Route: 048
     Dates: start: 20070101, end: 20120521
  3. SEACOR [Concomitant]
     Route: 048
     Dates: start: 20110101

REACTIONS (2)
  - SUBDURAL HAEMORRHAGE [None]
  - HEAD INJURY [None]
